FAERS Safety Report 10686576 (Version 1)
Quarter: 2015Q1

REPORT INFORMATION
  Report Type: Spontaneous
  Country: US (occurrence: US)
  Receive Date: 20150101
  Receipt Date: 20150101
  Transmission Date: 20150720
  Serious: No
  Sender: FDA-Public Use
  Company Number: US-BIOGENIDEC-2014BI138828

PATIENT
  Sex: Female

DRUGS (1)
  1. AVONEX [Suspect]
     Active Substance: INTERFERON BETA-1A
     Indication: MULTIPLE SCLEROSIS
     Route: 030
     Dates: start: 20010801

REACTIONS (9)
  - Fatigue [Unknown]
  - Ear pain [Unknown]
  - Cognitive disorder [Unknown]
  - Pain [Unknown]
  - Multiple sclerosis relapse [Unknown]
  - Nasal congestion [Unknown]
  - Feeling abnormal [Unknown]
  - Nasopharyngitis [Unknown]
  - Tremor [Unknown]
